FAERS Safety Report 5964504-2 (Version None)
Quarter: 2008Q4

REPORT INFORMATION
  Report Type: 
  Country: None (occurrence: None)
  Receive Date: 20081125
  Receipt Date: 20081118
  Transmission Date: 20090506
  Serious: Yes (Other)
  Sender: FDA-Public Use
  Company Number: CA-JNJFOC-20081101346

PATIENT
  Age: 65 Year
  Sex: Male

DRUGS (1)
  1. REOPRO [Suspect]
     Indication: ANGIOPLASTY

REACTIONS (2)
  - CARDIAC TAMPONADE [None]
  - GASTROINTESTINAL HAEMORRHAGE [None]
